FAERS Safety Report 5451783-3 (Version None)
Quarter: 2007Q3

REPORT INFORMATION
  Report Type: 
  Country: None (occurrence: None)
  Receive Date: 20070913
  Receipt Date: 20070905
  Transmission Date: 20080115
  Serious: Yes (Hospitalization)
  Sender: FDA-Public Use
  Company Number: JP-MERCK-0709USA00904

PATIENT
  Age: 43 Year
  Sex: Female

DRUGS (5)
  1. SINGULAIR [Suspect]
     Indication: ASTHMA
     Route: 048
     Dates: start: 20070801, end: 20070804
  2. PREDONINE [Suspect]
     Indication: ASTHMA
     Route: 048
     Dates: start: 20070723
  3. THEO-DUR [Concomitant]
     Indication: ASTHMA
     Route: 048
     Dates: start: 20070723
  4. MESTRANOL AND NORETHINDRONE [Concomitant]
     Indication: ENDOMETRIOSIS
     Route: 048
     Dates: start: 20070723
  5. ZOLPIDEM TARTRATE [Concomitant]
     Indication: INSOMNIA
     Route: 048
     Dates: start: 20070723

REACTIONS (3)
  - ALLERGIC GRANULOMATOUS ANGIITIS [None]
  - HYPOAESTHESIA [None]
  - PYREXIA [None]
